FAERS Safety Report 19216483 (Version 1)
Quarter: 2021Q2

REPORT INFORMATION
  Report Type: Spontaneous
  Country: GB (occurrence: GB)
  Receive Date: 20210505
  Receipt Date: 20210505
  Transmission Date: 20210717
  Serious: Yes (Hospitalization)
  Sender: FDA-Public Use
  Company Number: GB-MYLANLABS-2021M1026062

PATIENT
  Age: 54 Year
  Sex: Female

DRUGS (1)
  1. ESCITALOPRAM [Suspect]
     Active Substance: ESCITALOPRAM OXALATE
     Indication: ILL-DEFINED DISORDER
     Dosage: 20 MILLIGRAM, QD (ONE DAILY)
     Route: 048

REACTIONS (3)
  - Somnolence [Unknown]
  - Product dispensing error [Unknown]
  - Malaise [Unknown]
